FAERS Safety Report 7322370-7 (Version None)
Quarter: 2011Q1

REPORT INFORMATION
  Report Type: 
  Country: None (occurrence: None)
  Receive Date: 20110301
  Receipt Date: 20110217
  Transmission Date: 20110831
  Serious: No
  Sender: FDA-Public Use
  Company Number: US-BIOGENIDEC-2011BI006753

PATIENT
  Age: 22 Year
  Sex: Male

DRUGS (2)
  1. COPAXONE [Concomitant]
  2. TYSABRI [Suspect]
     Indication: MULTIPLE SCLEROSIS
     Route: 042
     Dates: start: 20110207

REACTIONS (3)
  - ANXIETY [None]
  - DIZZINESS [None]
  - FEELING ABNORMAL [None]
